FAERS Safety Report 13484149 (Version 1)
Quarter: 2017Q2

REPORT INFORMATION
  Report Type: Spontaneous
  Country: US (occurrence: US)
  Receive Date: 20170426
  Receipt Date: 20170426
  Transmission Date: 20170830
  Serious: Yes (Hospitalization, Other)
  Sender: FDA-Public Use
  Company Number: US-AMGEN-USASP2017062522

PATIENT
  Sex: Female

DRUGS (3)
  1. ETOPOSIDE. [Concomitant]
     Active Substance: ETOPOSIDE
     Indication: RHABDOMYOSARCOMA
     Dosage: UNK
  2. NEUPOGEN [Suspect]
     Active Substance: FILGRASTIM
     Indication: PRODUCT USED FOR UNKNOWN INDICATION
     Dosage: UNK (300 MCG/0.5ML SINGLEJECT, FIRST ROUND)
     Route: 065
     Dates: start: 20170317
  3. NEUPOGEN [Suspect]
     Active Substance: FILGRASTIM
     Dosage: 300 MUL/ML, UNK (300 MUL/ML, SECOND ROUND)
     Route: 065
     Dates: start: 20170410

REACTIONS (3)
  - Hypoglycaemia [Unknown]
  - White blood cell count decreased [Unknown]
  - Febrile neutropenia [Unknown]

NARRATIVE: CASE EVENT DATE: 201703
